FAERS Safety Report 6857970-1 (Version None)
Quarter: 2010Q3

REPORT INFORMATION
  Report Type: 
  Country: None (occurrence: None)
  Receive Date: 20100714
  Receipt Date: 20100705
  Transmission Date: 20110219
  Serious: Yes (Hospitalization)
  Sender: FDA-Public Use
  Company Number: 2010US002631

PATIENT
  Age: 30 Year
  Sex: Male

DRUGS (2)
  1. AMBISOME [Suspect]
     Indication: MENINGITIS CRYPTOCOCCAL
     Dosage: 400 MG, UID/QD, IV DRIP
     Route: 041
     Dates: start: 20100216, end: 20100307
  2. AMBISOME [Suspect]
     Indication: MENINGITIS CRYPTOCOCCAL
     Dosage: 400 MG, UID/QD, IV DRIP
     Route: 041
     Dates: start: 20100327

REACTIONS (2)
  - HYPOKALAEMIA [None]
  - LIPIDS ABNORMAL [None]
